FAERS Safety Report 8343405 (Version 4)
Quarter: 2013Q2

REPORT INFORMATION
  Report Type: Spontaneous
  Country: CA (occurrence: CA)
  Receive Date: 20120119
  Receipt Date: 20130507
  Transmission Date: 20140414
  Serious: Yes (Other)
  Sender: FDA-Public Use
  Company Number: CA-ELI_LILLY_AND_COMPANY-CA201201003131

PATIENT
  Age: 64 Year
  Sex: Female
  Weight: 59 kg

DRUGS (26)
  1. FORTEO [Suspect]
     Indication: OSTEOPOROSIS
     Dosage: 20 UG, QD
     Route: 058
     Dates: start: 20110907
  2. FENTANYL [Concomitant]
  3. DOCUSATE SODIUM [Concomitant]
  4. ATIVAN [Concomitant]
  5. CELEXA [Concomitant]
  6. POTASSIUM [Concomitant]
  7. D-TABS [Concomitant]
  8. FERROUS SULFATE [Concomitant]
  9. CLONAZEPAM [Concomitant]
  10. VITAMIN A [Concomitant]
  11. K-DUR [Concomitant]
  12. SENOKOT [Concomitant]
  13. MIRTAZAPINE [Concomitant]
  14. STATEX [Concomitant]
  15. ASA [Concomitant]
  16. DOMPERIDONE [Concomitant]
  17. NEXIUM [Concomitant]
  18. VOLTAREN                           /00372302/ [Concomitant]
  19. CENTRUM FORTE [Concomitant]
  20. CALCIUM [Concomitant]
  21. FUROSEMIDE [Concomitant]
  22. FLURAZEPAM [Concomitant]
  23. NAPROSYN [Concomitant]
  24. CREON [Concomitant]
  25. VITAMIN D3 [Concomitant]
  26. VITAMIN K NOS [Concomitant]

REACTIONS (4)
  - Abasia [Not Recovered/Not Resolved]
  - Impaired healing [Not Recovered/Not Resolved]
  - Stress fracture [Not Recovered/Not Resolved]
  - Bone disorder [Not Recovered/Not Resolved]
